FAERS Safety Report 8925341 (Version 1)
Quarter: 2012Q4

REPORT INFORMATION
  Report Type: 
  Country: AU (occurrence: AU)
  Receive Date: 20121126
  Receipt Date: 20121126
  Transmission Date: 20130627
  Serious: Yes (Hospitalization, Other)
  Sender: FDA-Public Use
  Company Number: AU-BAYER-2012-121252

PATIENT
  Age: 71 Year
  Sex: Male

DRUGS (3)
  1. ACETYLSALICYLIC ACID (} 100 MG) [Suspect]
     Indication: ANTICOAGULANT THERAPY
  2. WARFARIN [Suspect]
     Indication: ANTICOAGULANT THERAPY
  3. DABIGATRAN [Concomitant]

REACTIONS (2)
  - Cerebellar haematoma [Recovered/Resolved]
  - Pseudomeningocele [None]
